FAERS Safety Report 9386825 (Version 1)
Quarter: 2013Q3

REPORT INFORMATION
  Report Type: Spontaneous
  Country: TW (occurrence: None)
  Receive Date: 20130702
  Receipt Date: 20130702
  Transmission Date: 20140515
  Serious: Yes (Hospitalization)
  Sender: FDA-Public Use
  Company Number: 2013P1010842

PATIENT
  Age: 65 Year
  Sex: Male

DRUGS (2)
  1. RISPERIDONE [Suspect]
     Indication: ALCOHOL USE
     Dates: start: 200601, end: 200806
  2. OXCARABAZEPINE [Concomitant]

REACTIONS (7)
  - Diaphragmatic disorder [None]
  - Tardive dyskinesia [None]
  - Dyskinesia [None]
  - Throat tightness [None]
  - Dysphonia [None]
  - Dyspnoea [None]
  - Hyperventilation [None]
